FAERS Safety Report 15538874 (Version 3)
Quarter: 2019Q2

REPORT INFORMATION
  Report Type: Report from Study
  Country: GB (occurrence: GB)
  Receive Date: 20181022
  Receipt Date: 20190508
  Transmission Date: 20190711
  Serious: Yes (Hospitalization)
  Sender: FDA-Public Use
  Company Number: GB-SA-2018SA255594

PATIENT
  Age: 69 Year
  Sex: Female

DRUGS (19)
  1. ORAMORPH [Concomitant]
     Active Substance: MORPHINE SULFATE
     Indication: ABDOMINAL PAIN
     Dosage: 10 MG, PRN, 2HOURLY
     Route: 048
     Dates: start: 20180902
  2. FORTISIP [Concomitant]
     Active Substance: CARBOHYDRATES\FATTY ACIDS\MINERALS\PROTEIN\VITAMINS
     Indication: DECREASED APPETITE
     Dosage: UNK UNK, PRN, 1 CARTON
     Route: 048
     Dates: start: 20180801
  3. MORPHINE SULPHATE [Concomitant]
     Active Substance: MORPHINE SULFATE
     Indication: ABDOMINAL PAIN
     Dosage: 20 MG, BID
     Route: 048
     Dates: start: 20180917
  4. FLUCONAZOLE. [Concomitant]
     Active Substance: FLUCONAZOLE
     Indication: CANDIDA INFECTION
     Dosage: 200 MG, QD
     Route: 048
     Dates: start: 20180917
  5. DOMPERIDONE [Concomitant]
     Active Substance: DOMPERIDONE
     Indication: NAUSEA
     Dosage: 10 MG, TID (TDS)
     Route: 048
     Dates: start: 20180917, end: 20181008
  6. PLERIXAFOR [Suspect]
     Active Substance: PLERIXAFOR
     Dosage: 80 MCG/KG/HR
     Route: 041
     Dates: start: 20180903, end: 20180910
  7. ONDANSETRON [Concomitant]
     Active Substance: ONDANSETRON
     Indication: VOMITING
     Dosage: 8 MG, PRN  BD, IV/PO
     Dates: start: 20180903, end: 20180906
  8. DOMPERIDONE [Concomitant]
     Active Substance: DOMPERIDONE
     Indication: VOMITING
     Dosage: 20 MG, TID (TDS)
     Route: 048
     Dates: start: 20181008
  9. LOPERAMIDE [Concomitant]
     Active Substance: LOPERAMIDE
     Indication: DIARRHOEA
     Dosage: 2 MG, PRN (QDS)
     Route: 048
     Dates: start: 201808
  10. SENNATAB [Concomitant]
     Dosage: 15 MG, QD
     Route: 061
     Dates: start: 201808, end: 20180902
  11. METOCLOPRAMIDE. [Concomitant]
     Active Substance: METOCLOPRAMIDE
     Indication: NAUSEA
     Dosage: 10 MG, BID
     Dates: start: 201807, end: 20180904
  12. LIGNOCAINE [LIDOCAINE] [Concomitant]
     Dosage: 5 ML, 1X
     Route: 058
     Dates: start: 20180821, end: 20180821
  13. OMEPRAZOLE. [Concomitant]
     Active Substance: OMEPRAZOLE
     Indication: GASTRIC DISORDER
     Dosage: 40 MG, QD
     Route: 048
     Dates: start: 2017
  14. RENNIES [Concomitant]
     Indication: GASTRIC DISORDER
     Dosage: 1 DF, PRN, QD
     Route: 048
     Dates: start: 201808
  15. ONDANSETRON [Concomitant]
     Active Substance: ONDANSETRON
     Indication: NAUSEA
     Dosage: 8 MG, BID
     Route: 048
     Dates: start: 20180917
  16. PANCREATIN [Concomitant]
     Active Substance: PANCRELIPASE
     Indication: PANCREATIC FAILURE
     Dosage: 25000 U, PRN (TDS)
     Route: 048
     Dates: start: 20180905
  17. CORSODYL [Concomitant]
     Active Substance: CHLORHEXIDINE GLUCONATE
     Indication: CANDIDA INFECTION
     Dosage: 10 ML, TID (TDS)
     Route: 048
     Dates: start: 20180917
  18. PARACETAMOL [Concomitant]
     Active Substance: ACETAMINOPHEN
     Indication: ABDOMINAL PAIN
     Dosage: 1 G, PRN (TDS)
     Route: 048
     Dates: start: 201807
  19. METOCLOPRAMIDE. [Concomitant]
     Active Substance: METOCLOPRAMIDE
     Indication: VOMITING

REACTIONS (2)
  - Paraesthesia [Recovered/Resolved]
  - Gastritis [Not Recovered/Not Resolved]

NARRATIVE: CASE EVENT DATE: 20180904
